FAERS Safety Report 24196371 (Version 1)
Quarter: 2024Q3

REPORT INFORMATION
  Report Type: Spontaneous
  Country: GB (occurrence: GB)
  Receive Date: 20240809
  Receipt Date: 20240809
  Transmission Date: 20241017
  Serious: Yes (Hospitalization, Other)
  Sender: TEVA
  Company Number: None

PATIENT
  Age: 82 Year
  Sex: Female

DRUGS (15)
  1. PREDNISOLONE [Suspect]
     Active Substance: PREDNISOLONE
     Indication: Lower respiratory tract infection
     Route: 065
     Dates: end: 20240724
  2. HUMULIN L [Concomitant]
     Active Substance: INSULIN HUMAN
     Dosage: OM, KWIKPEN
  3. POLYETHYLENE GLYCOLS [Concomitant]
     Active Substance: POLYETHYLENE GLYCOLS
     Dosage: 1 SACHETS BD
  4. LINAGLIPTIN [Concomitant]
     Active Substance: LINAGLIPTIN
     Dosage: OM
     Dates: start: 20240724
  5. SENNA [Concomitant]
     Active Substance: SENNA LEAF\SENNOSIDES\SENNOSIDES A AND B
     Dosage: ON
  6. EDOXABAN [Concomitant]
     Active Substance: EDOXABAN
     Dosage: OD
     Dates: end: 20240724
  7. SODIUM BICARBONATE [Concomitant]
     Active Substance: SODIUM BICARBONATE
     Dosage: 1 GRAM TDS
  8. CALCIUM CARBONATE\CHOLECALCIFEROL [Concomitant]
     Active Substance: CALCIUM CARBONATE\CHOLECALCIFEROL
  9. FERROUS FUMARATE [Concomitant]
     Active Substance: FERROUS FUMARATE
     Dosage: AT LUNCH
  10. BUMETANIDE [Concomitant]
     Active Substance: BUMETANIDE
     Dosage: 3MG OM + 2MG AT LUNCH
     Dates: end: 20240724
  11. BISOPROLOL [Concomitant]
     Active Substance: BISOPROLOL\BISOPROLOL FUMARATE
  12. SIMVASTATIN [Concomitant]
     Active Substance: SIMVASTATIN
     Dosage: ON
  13. AMOXICILLIN\CLAVULANIC ACID [Concomitant]
     Active Substance: AMOXICILLIN\CLAVULANIC ACID
     Dosage: 500/125MG TABLETS
     Dates: end: 20240724
  14. PREDNISONE [Concomitant]
     Active Substance: PREDNISONE
     Dates: start: 20240724, end: 20240724
  15. SPIRONOLACTONE [Concomitant]
     Active Substance: SPIRONOLACTONE
     Dosage: OM
     Dates: start: 20240724

REACTIONS (1)
  - Hyperglycaemia [Recovered/Resolved]
